FAERS Safety Report 14031632 (Version 1)
Quarter: 2017Q4

REPORT INFORMATION
  Report Type: Spontaneous
  Country: GR (occurrence: GR)
  Receive Date: 20171002
  Receipt Date: 20171002
  Transmission Date: 20180321
  Serious: Yes (Life-Threatening, Hospitalization)
  Sender: FDA-Public Use
  Company Number: GR-MYLANLABS-2017M1061021

PATIENT
  Age: 48 Year
  Sex: Female

DRUGS (2)
  1. DOXORUBICIN [Suspect]
     Active Substance: DOXORUBICIN
     Indication: CHONDROSARCOMA
     Dosage: TOTAL 4 CYCLES
     Route: 050
  2. IFOSFAMIDE. [Concomitant]
     Active Substance: IFOSFAMIDE
     Indication: CHONDROSARCOMA
     Dosage: TOTAL 6 CYCLES
     Route: 065

REACTIONS (4)
  - Hepatic failure [Recovered/Resolved]
  - Cardiomyopathy [Recovered/Resolved]
  - Cardiac failure chronic [Recovered/Resolved]
  - Acute kidney injury [Recovered/Resolved]
